FAERS Safety Report 16922296 (Version 4)
Quarter: 2023Q2

REPORT INFORMATION
  Report Type: Spontaneous
  Country: FR (occurrence: FR)
  Receive Date: 20191015
  Receipt Date: 20230630
  Transmission Date: 20230722
  Serious: Yes (Death, Life-Threatening, Other)
  Sender: FDA-Public Use
  Company Number: FR-AMGEN-FRASP2019168555

PATIENT

DRUGS (3)
  1. PANITUMUMAB [Suspect]
     Active Substance: PANITUMUMAB
     Indication: Anal cancer
     Dosage: 3 MILLIGRAM/KILOGRAM, CYCLICAL
     Route: 065
  2. MITOMYCIN C [Suspect]
     Active Substance: MITOMYCIN
     Indication: Anal cancer
     Dosage: 10 MILLIGRAM/SQ. METER, CYCLICAL
     Route: 065
  3. FLUOROURACIL [Suspect]
     Active Substance: FLUOROURACIL
     Indication: Anal cancer
     Dosage: 400 MILLIGRAM/SQ. METER, CYCLICAL
     Route: 065

REACTIONS (23)
  - Death [Fatal]
  - Intestinal ischaemia [Fatal]
  - Anal cancer recurrent [Fatal]
  - Septic shock [Fatal]
  - Pancreatic carcinoma [Fatal]
  - Toxicity to various agents [Fatal]
  - Gastrointestinal toxicity [Unknown]
  - Lymphopenia [Unknown]
  - Neutropenia [Unknown]
  - Asthenia [Unknown]
  - Diarrhoea [Unknown]
  - Radiation skin injury [Unknown]
  - Sepsis [Unknown]
  - Decreased appetite [Unknown]
  - Acute coronary syndrome [Unknown]
  - Female genital tract fistula [Unknown]
  - Vertigo [Unknown]
  - Vulvovaginal inflammation [Unknown]
  - Perineal disorder [Unknown]
  - Drug intolerance [Unknown]
  - Therapy partial responder [Unknown]
  - Proctalgia [Unknown]
  - Off label use [Unknown]
